FAERS Safety Report 25047998 (Version 1)
Quarter: 2025Q1

REPORT INFORMATION
  Report Type: Report from Study
  Country: US (occurrence: US)
  Receive Date: 20250306
  Receipt Date: 20250306
  Transmission Date: 20250409
  Serious: Yes (Other)
  Sender: ABBVIE
  Company Number: US-ABBVIE-6160882

PATIENT
  Age: 51 Year
  Sex: Female

DRUGS (1)
  1. RINVOQ [Suspect]
     Active Substance: UPADACITINIB
     Indication: Product used for unknown indication
     Route: 048
     Dates: start: 20240702, end: 20241211

REACTIONS (4)
  - Pulmonary thrombosis [Recovering/Resolving]
  - Renal disorder [Recovering/Resolving]
  - Blood potassium increased [Unknown]
  - Crohn^s disease [Unknown]
